FAERS Safety Report 14927571 (Version 1)
Quarter: 2018Q2

REPORT INFORMATION
  Report Type: Spontaneous
  Country: US (occurrence: US)
  Receive Date: 20180504
  Receipt Date: 20180504
  Transmission Date: 20180711
  Serious: No
  Sender: FDA-Public Use
  Company Number: None

PATIENT
  Age: 41 Year
  Sex: Female
  Weight: 51.75 kg

DRUGS (5)
  1. PROBIOTIC [Concomitant]
     Active Substance: PROBIOTICS NOS
  2. IMITREX [Concomitant]
     Active Substance: SUMATRIPTAN SUCCINATE
  3. MULTI VITAMIN [Concomitant]
     Active Substance: VITAMINS
  4. CIPROFLOXACIN. [Suspect]
     Active Substance: CIPROFLOXACIN
     Indication: CORNEAL ABRASION
     Route: 047
     Dates: start: 20180501, end: 20180502
  5. FISH OIL [Concomitant]
     Active Substance: FISH OIL

REACTIONS (9)
  - Palpitations [None]
  - Flushing [None]
  - Depressed level of consciousness [None]
  - Paraesthesia [None]
  - Product taste abnormal [None]
  - Headache [None]
  - Arthralgia [None]
  - Rhinorrhoea [None]
  - Fatigue [None]

NARRATIVE: CASE EVENT DATE: 20180502
